FAERS Safety Report 4978917-9 (Version None)
Quarter: 2006Q2

REPORT INFORMATION
  Report Type: 
  Country: None (occurrence: None)
  Receive Date: 20060421
  Receipt Date: 20060412
  Transmission Date: 20061013
  Serious: Yes (Hospitalization)
  Sender: FDA-Public Use
  Company Number: GB-JNJFOC-20060402765

PATIENT
  Sex: Male
  Weight: 80 kg

DRUGS (10)
  1. REMICADE [Suspect]
     Route: 042
  2. REMICADE [Suspect]
     Indication: RHEUMATOID ARTHRITIS
     Route: 042
  3. SULFASALAZINE [Concomitant]
     Route: 065
  4. METHOTREXATE [Concomitant]
     Route: 065
  5. PREDNISOLONE [Concomitant]
     Route: 065
  6. ATENOLOL [Concomitant]
     Route: 065
  7. CO-PROXAMOL [Concomitant]
     Route: 065
  8. CO-PROXAMOL [Concomitant]
     Route: 065
  9. DICLOFENAC SODIUM [Concomitant]
     Route: 065
  10. LANSOPRAZOLE [Concomitant]
     Route: 065

REACTIONS (1)
  - OSTEOMYELITIS [None]
